FAERS Safety Report 7227963-3 (Version None)
Quarter: 2011Q1

REPORT INFORMATION
  Report Type: 
  Country: None (occurrence: None)
  Receive Date: 20110114
  Receipt Date: 20110110
  Transmission Date: 20110831
  Serious: Yes (Life-Threatening, Hospitalization)
  Sender: FDA-Public Use
  Company Number: FR-PFIZER INC-2011006664

PATIENT
  Age: 28 Year
  Sex: Female
  Weight: 45 kg

DRUGS (12)
  1. VFEND [Suspect]
     Dosage: UNK
     Dates: start: 20101018, end: 20101115
  2. KEPPRA [Suspect]
     Dosage: UNK
     Route: 048
     Dates: start: 20101029, end: 20101124
  3. VIREAD [Concomitant]
     Indication: ANTIRETROVIRAL THERAPY
     Dosage: UNK
  4. ETHAMBUTOL [Concomitant]
     Indication: TUBERCULOSIS
     Dosage: UNK
  5. PARA AMINOSALICYLIC ACID [Concomitant]
     Indication: TUBERCULOSIS
     Dosage: UNK
  6. KALETRA [Concomitant]
     Indication: ANTIRETROVIRAL THERAPY
     Dosage: UNK
  7. ZIAGEN [Concomitant]
     Indication: ANTIRETROVIRAL THERAPY
     Dosage: UNK
  8. CYCLOSERINE [Concomitant]
     Indication: TUBERCULOSIS
     Dosage: UNK
  9. MOXIFLOXACIN [Concomitant]
     Indication: TUBERCULOSIS
     Dosage: UNK
  10. URBANYL [Suspect]
     Dosage: UNK
     Route: 048
     Dates: start: 20101021, end: 20101117
  11. CORTANCYL [Concomitant]
     Dosage: UNK
  12. FLAGYL [Suspect]
     Dosage: UNK
     Route: 048
     Dates: start: 20101110, end: 20101116

REACTIONS (3)
  - TOXIC EPIDERMAL NECROLYSIS [None]
  - EOSINOPHILIA [None]
  - OEDEMA [None]
